FAERS Safety Report 19451505 (Version 1)
Quarter: 2021Q2

REPORT INFORMATION
  Report Type: Spontaneous
  Country: US (occurrence: US)
  Receive Date: 20210623
  Receipt Date: 20210623
  Transmission Date: 20210717
  Serious: Yes (Hospitalization)
  Sender: FDA-Public Use
  Company Number: None

PATIENT
  Age: 60 Year
  Sex: Female
  Weight: 74.2 kg

DRUGS (4)
  1. BENDAMUSTINE HYDROCHLORIDE. [Suspect]
     Active Substance: BENDAMUSTINE HYDROCHLORIDE
     Dates: end: 20210514
  2. CYTARABINE. [Suspect]
     Active Substance: CYTARABINE
     Dates: end: 20210611
  3. ACALABRUTINIB. [Suspect]
     Active Substance: ACALABRUTINIB
     Dates: end: 20210616
  4. RITUXIMAB (MOAB C2B8 ANTI CD20, CHIMERIC) [Suspect]
     Active Substance: RITUXIMAB
     Dates: end: 20210610

REACTIONS (5)
  - Febrile neutropenia [None]
  - Chills [None]
  - Fatigue [None]
  - Platelet count decreased [None]
  - Cough [None]

NARRATIVE: CASE EVENT DATE: 20210621
